FAERS Safety Report 21322925 (Version 4)
Quarter: 2022Q4

REPORT INFORMATION
  Report Type: Report from Study
  Country: GR (occurrence: GR)
  Receive Date: 20220912
  Receipt Date: 20221110
  Transmission Date: 20230113
  Serious: Yes (Hospitalization)
  Sender: FDA-Public Use
  Company Number: GR-ABBVIE-22K-066-4529420-00

PATIENT
  Sex: Female

DRUGS (4)
  1. CARBIDOPA\LEVODOPA [Suspect]
     Active Substance: CARBIDOPA\LEVODOPA
     Indication: Parkinson^s disease
     Dosage: MORNING DOSE: 7.6ML; CONTINUOUS RATE: 2.3ML/H; EXTRA DOSE: 1.0ML
     Route: 050
     Dates: start: 20210920
  2. CARBIDOPA\LEVODOPA [Suspect]
     Active Substance: CARBIDOPA\LEVODOPA
     Dosage: MORNING DOSE: 7.3 ML; CONTINUOUS RATE: 2.2 ML/H; EXTRA DOSE: 1.3 ML
     Route: 050
  3. CARBIDOPA\LEVODOPA [Suspect]
     Active Substance: CARBIDOPA\LEVODOPA
     Dosage: MORNING DOSE: 7.3 ML; CONTINUOUS RATE: 2.1 ML/H; EXTRA DOSE: 1.3 ML
     Route: 050
  4. CARBIDOPA\LEVODOPA [Suspect]
     Active Substance: CARBIDOPA\LEVODOPA
     Dosage: MORNING DOSE: 7.3 ML; CONTINUOUS RATE: 2.2 ML/H; EXTRA DOSE: 1.3 ML

REACTIONS (4)
  - Hyponatraemia [Recovering/Resolving]
  - Renal disorder [Unknown]
  - Endocrine disorder [Unknown]
  - Inappropriate antidiuretic hormone secretion [Not Recovered/Not Resolved]
